FAERS Safety Report 12969671 (Version 1)
Quarter: 2016Q4

REPORT INFORMATION
  Report Type: Spontaneous
  Country: US (occurrence: US)
  Receive Date: 20161123
  Receipt Date: 20161123
  Transmission Date: 20170207
  Serious: No
  Sender: FDA-Public Use
  Company Number: US-PERRIGO-15US013158

PATIENT
  Age: 53 Year
  Sex: Female
  Weight: 61.22 kg

DRUGS (1)
  1. NICOTINE POLACRILEX [Suspect]
     Active Substance: NICOTINE
     Indication: SMOKING CESSATION THERAPY
     Dosage: 4 MG, 1 TO 2 TIMES DAILY
     Route: 002
     Dates: start: 20151208, end: 20151214

REACTIONS (2)
  - Tongue discomfort [Recovered/Resolved]
  - Oral discomfort [Recovered/Resolved]

NARRATIVE: CASE EVENT DATE: 20151208
